FAERS Safety Report 10017176 (Version 2)
Quarter: 2014Q1

REPORT INFORMATION
  Report Type: Other
  Country: US (occurrence: US)
  Receive Date: 20140318
  Receipt Date: 20140318
  Transmission Date: 20141002
  Serious: Yes (Other)
  Sender: FDA-Public Use
  Company Number: US-SUN PHARMACEUTICAL INDUSTRIES LTD-2014SUN00370

PATIENT
  Age: 58 Year
  Sex: Male
  Weight: 77.98 kg

DRUGS (1)
  1. HYDROCODONE BITARTRATE + ACETAMINOPHEN C-III TABS 10MG/325MG [Suspect]
     Indication: NECK PAIN
     Dosage: 5 TO 6 TABLETS DAILY
     Route: 065
     Dates: start: 20140106, end: 20140110

REACTIONS (10)
  - Abdominal pain upper [Recovered/Resolved]
  - Diarrhoea [Recovered/Resolved]
  - Decreased appetite [Recovered/Resolved]
  - Depression [Recovered/Resolved]
  - Confusional state [Recovered/Resolved]
  - Insomnia [Recovered/Resolved]
  - Withdrawal syndrome [Recovered/Resolved]
  - Pain [Recovered/Resolved]
  - Drug ineffective [Recovered/Resolved]
  - Product substitution issue [Recovered/Resolved]
